FAERS Safety Report 14495051 (Version 1)
Quarter: 2018Q1

REPORT INFORMATION
  Report Type: Spontaneous
  Country: BE (occurrence: BE)
  Receive Date: 20180206
  Receipt Date: 20180206
  Transmission Date: 20180509
  Serious: Yes (Hospitalization, Other)
  Sender: FDA-Public Use
  Company Number: BE-MYLANLABS-2018M1007453

PATIENT
  Age: 12 Year
  Sex: Female

DRUGS (1)
  1. MINOCYCLINE [Suspect]
     Active Substance: MINOCYCLINE\MINOCYCLINE HYDROCHLORIDE
     Indication: ACNE
     Dosage: 50 MG, QD
     Route: 065

REACTIONS (4)
  - Papilloedema [Not Recovered/Not Resolved]
  - Headache [Recovering/Resolving]
  - Idiopathic intracranial hypertension [Recovering/Resolving]
  - Diplopia [Recovering/Resolving]
